FAERS Safety Report 8348233-6 (Version None)
Quarter: 2012Q2

REPORT INFORMATION
  Report Type: 
  Country: None (occurrence: None)
  Receive Date: 20120509
  Receipt Date: 20120426
  Transmission Date: 20120825
  Serious: Yes (Life-Threatening, Hospitalization)
  Sender: FDA-Public Use
  Company Number: TR-MYLANLABS-2012S1008912

PATIENT
  Age: 26 Year
  Sex: Female
  Weight: 50 kg

DRUGS (2)
  1. AMITRIPTYLINE HCL [Suspect]
     Indication: INTENTIONAL OVERDOSE
     Dosage: 200 X 25MG TABLETS
     Route: 048
  2. HYDROXYZINE [Suspect]
     Indication: INTENTIONAL OVERDOSE
     Dosage: 60 X 2MG TABLETS
     Route: 048

REACTIONS (8)
  - LOSS OF CONSCIOUSNESS [None]
  - TOXICITY TO VARIOUS AGENTS [None]
  - INTENTIONAL OVERDOSE [None]
  - CARDIO-RESPIRATORY ARREST [None]
  - VENTRICULAR FIBRILLATION [None]
  - HEPATIC ENZYME INCREASED [None]
  - GRAND MAL CONVULSION [None]
  - ARRHYTHMIA [None]
